FAERS Safety Report 7045134-0 (Version None)
Quarter: 2010Q4

REPORT INFORMATION
  Report Type: 
  Country: None (occurrence: None)
  Receive Date: 20101014
  Receipt Date: 20101011
  Transmission Date: 20110411
  Serious: Yes (Death, Hospitalization, Other)
  Sender: FDA-Public Use
  Company Number: US-ELI_LILLY_AND_COMPANY-US201009004172

PATIENT
  Sex: Female

DRUGS (1)
  1. ALIMTA [Suspect]

REACTIONS (2)
  - MALIGNANT NEOPLASM PROGRESSION [None]
  - SURGERY [None]
